FAERS Safety Report 21375727 (Version 1)
Quarter: 2022Q3

REPORT INFORMATION
  Report Type: Spontaneous
  Country: US (occurrence: US)
  Receive Date: 20220926
  Receipt Date: 20220926
  Transmission Date: 20221027
  Serious: Yes (Hospitalization, Other)
  Sender: FDA-Public Use
  Company Number: US-drreddys-SPO/USA/22/0154811

PATIENT
  Age: 49 Year
  Sex: Male

DRUGS (3)
  1. TACROLIMUS [Suspect]
     Active Substance: TACROLIMUS
     Indication: Immunosuppressant drug therapy
  2. MYCOPHENOLATE MOFETIL [Suspect]
     Active Substance: MYCOPHENOLATE MOFETIL
     Indication: Immunosuppressant drug therapy
  3. SULFAMETHOXAZOLE 400 mg, TRIMETHOPRIM 80 mg [Concomitant]
     Indication: Infection prophylaxis

REACTIONS (3)
  - Cat scratch disease [Recovered/Resolved]
  - Meningitis bacterial [Recovered/Resolved]
  - Brain abscess [Recovered/Resolved]
